FAERS Safety Report 6451957-9 (Version None)
Quarter: 2009Q4

REPORT INFORMATION
  Report Type: 
  Country: None (occurrence: None)
  Receive Date: 20091123
  Receipt Date: 20091116
  Transmission Date: 20100525
  Serious: Yes (Other)
  Sender: FDA-Public Use
  Company Number: US-GENENTECH-293660

PATIENT
  Sex: Female
  Weight: 29.4 kg

DRUGS (2)
  1. BEVACIZUMAB [Suspect]
     Indication: EPENDYMOMA
     Dosage: 274 MG, Q2W
     Route: 042
     Dates: start: 20091016, end: 20091016
  2. LAPATINIB [Suspect]
     Indication: EPENDYMOMA
     Dosage: 875 MG, BID
     Route: 050
     Dates: start: 20091016

REACTIONS (1)
  - ALANINE AMINOTRANSFERASE INCREASED [None]
